FAERS Safety Report 23111577 (Version 1)
Quarter: 2023Q4

REPORT INFORMATION
  Report Type: Spontaneous
  Country: US (occurrence: US)
  Receive Date: 20231026
  Receipt Date: 20231026
  Transmission Date: 20240109
  Serious: Yes (Hospitalization)
  Sender: FDA-Public Use
  Company Number: US-HLS-202301127

PATIENT
  Age: 70 Year
  Sex: Female

DRUGS (2)
  1. CLOZARIL [Suspect]
     Active Substance: CLOZAPINE
     Indication: Schizophrenia
     Route: 065
  2. CLOZARIL [Suspect]
     Active Substance: CLOZAPINE
     Indication: Schizophrenia
     Dosage: STARTED TITRATING BACK ?1) 25, 25 25 FOR 3 DAYS?2)  50, 50, 50, FOR NEXT 3DAYS?3)  100, 100, 100 FOR
     Route: 065

REACTIONS (4)
  - Dizziness [Unknown]
  - Fall [Unknown]
  - Paranoia [Unknown]
  - Insomnia [Unknown]

NARRATIVE: CASE EVENT DATE: 20230905
